FAERS Safety Report 6294922-7 (Version None)
Quarter: 2009Q3

REPORT INFORMATION
  Report Type: 
  Country: None (occurrence: None)
  Receive Date: 20090731
  Receipt Date: 20090731
  Transmission Date: 20100115
  Serious: Yes (Life-Threatening, Hospitalization)
  Sender: FDA-Public Use
  Company Number: None

PATIENT
  Age: 8 Year
  Sex: Female
  Weight: 38.5557 kg

DRUGS (1)
  1. VYVANSE [Suspect]
     Indication: DISTURBANCE IN ATTENTION
     Dosage: 1 PILL, ONLY TOOK-1 PILL, PO
     Route: 048
     Dates: start: 20090428, end: 20090428

REACTIONS (10)
  - APHASIA [None]
  - CRYING [None]
  - DYSKINESIA [None]
  - FEELING ABNORMAL [None]
  - HYPOAESTHESIA [None]
  - MOANING [None]
  - PALLOR [None]
  - RASH MACULAR [None]
  - RESPIRATORY RATE INCREASED [None]
  - UNRESPONSIVE TO STIMULI [None]
